FAERS Safety Report 15186484 (Version 1)
Quarter: 2018Q3

REPORT INFORMATION
  Report Type: Report from Study
  Country: US (occurrence: US)
  Receive Date: 20180723
  Receipt Date: 20180723
  Transmission Date: 20181010
  Serious: No
  Sender: FDA-Public Use
  Company Number: US-EXELIXIS-CABO-18012068

PATIENT
  Sex: Male

DRUGS (11)
  1. METOLAZONE. [Concomitant]
     Active Substance: METOLAZONE
  2. PREDNISONE. [Concomitant]
     Active Substance: PREDNISONE
  3. DITROPAN [Concomitant]
     Active Substance: OXYBUTYNIN CHLORIDE
  4. HYDRALAZINE [Concomitant]
     Active Substance: HYDRALAZINE HYDROCHLORIDE
  5. LASIX [Concomitant]
     Active Substance: FUROSEMIDE
  6. IMDUR [Concomitant]
     Active Substance: ISOSORBIDE MONONITRATE
  7. PROAIR HFA [Concomitant]
     Active Substance: ALBUTEROL SULFATE
  8. COMETRIQ [Suspect]
     Active Substance: CABOZANTINIB S-MALATE
     Indication: RENAL CANCER
     Dosage: 60 MG, QD
     Route: 048
     Dates: start: 201604
  9. COMETRIQ [Suspect]
     Active Substance: CABOZANTINIB S-MALATE
     Indication: METASTASES TO ABDOMINAL CAVITY
  10. ALLOPURINOL. [Concomitant]
     Active Substance: ALLOPURINOL
  11. COREG [Concomitant]
     Active Substance: CARVEDILOL

REACTIONS (1)
  - Muscle strain [Unknown]
